FAERS Safety Report 13311949 (Version 1)
Quarter: 2017Q1

REPORT INFORMATION
  Report Type: Spontaneous
  Country: US (occurrence: US)
  Receive Date: 20170309
  Receipt Date: 20170309
  Transmission Date: 20170428
  Serious: Yes (Other)
  Sender: FDA-Public Use
  Company Number: US-BAYER-2017-042258

PATIENT
  Age: 17 Year
  Weight: 61.7 kg

DRUGS (1)
  1. GADAVIST [Suspect]
     Active Substance: GADOBUTROL
     Dosage: 6.2 ML, ONCE
     Dates: start: 20170205, end: 20170205

REACTIONS (5)
  - Throat irritation [None]
  - Respiratory distress [None]
  - Face oedema [None]
  - Sneezing [None]
  - Pruritus [None]

NARRATIVE: CASE EVENT DATE: 2017
